FAERS Safety Report 9498221 (Version 2)
Quarter: 2013Q4

REPORT INFORMATION
  Report Type: Report from Study
  Country: US (occurrence: US)
  Receive Date: 20130904
  Receipt Date: 20131112
  Transmission Date: 20140711
  Serious: Yes (Death, Hospitalization, Other)
  Sender: FDA-Public Use
  Company Number: US-ACTELION-A-US2013-87781

PATIENT
  Age: 56 Year
  Sex: Female

DRUGS (12)
  1. TRACLEER [Suspect]
     Indication: PULMONARY ARTERIAL HYPERTENSION
     Dosage: 125 MG, BID
     Route: 048
     Dates: start: 201011
  2. TRACLEER [Suspect]
     Dosage: 62.5 MG BID
     Route: 048
     Dates: start: 201010, end: 201011
  3. VERAPAMIL [Concomitant]
     Dosage: 360 MG, QD
     Route: 048
     Dates: start: 2010
  4. ADVAIR [Concomitant]
     Dosage: 250/50 MCG, BID
     Route: 048
     Dates: start: 201101
  5. SYNTHROID [Concomitant]
     Dosage: 150 MCG, QD
     Route: 048
     Dates: start: 1983
  6. FLONASE [Concomitant]
     Dosage: 2 SPRAY, UNK
     Route: 045
     Dates: start: 2010
  7. PROBENECID [Concomitant]
     Dosage: 500 MG, QD
     Route: 048
     Dates: start: 2008
  8. LASIX [Concomitant]
     Dosage: 20 MG, BID
     Route: 048
     Dates: start: 201203
  9. METFORMIN [Concomitant]
     Dosage: 1000 MG, BID
     Route: 048
     Dates: start: 2007
  10. TOPROL [Concomitant]
     Dosage: 50 MG, BID
     Route: 048
     Dates: start: 2000
  11. NEURONTIN [Concomitant]
     Dosage: 300 MG, TID
     Route: 048
     Dates: start: 2011
  12. SPIRIVA [Concomitant]
     Dosage: 18 MCG, QD
     Route: 048
     Dates: start: 2000

REACTIONS (2)
  - Lung cancer metastatic [Fatal]
  - Pulmonary mass [Not Recovered/Not Resolved]
